FAERS Safety Report 15281736 (Version 2)
Quarter: 2018Q3

REPORT INFORMATION
  Report Type: Spontaneous
  Country: DE (occurrence: DE)
  Receive Date: 20180815
  Receipt Date: 20180827
  Transmission Date: 20181010
  Serious: Yes (Other)
  Sender: FDA-Public Use
  Company Number: DE-JNJFOC-20180817052

PATIENT
  Sex: Male
  Weight: 119 kg

DRUGS (27)
  1. XARELTO [Suspect]
     Active Substance: RIVAROXABAN
     Indication: PULMONARY EMBOLISM
     Route: 048
  2. TORASEMID [Concomitant]
     Active Substance: TORSEMIDE
     Route: 048
  3. ALLOPURINOL W/BENZBROMARONE [Concomitant]
     Route: 065
  4. GARLIC. [Concomitant]
     Active Substance: GARLIC
     Route: 065
  5. XARELTO [Suspect]
     Active Substance: RIVAROXABAN
     Indication: DEEP VEIN THROMBOSIS
     Route: 048
  6. GINKGO [Concomitant]
     Active Substance: GINKGO
     Route: 065
  7. XARELTO [Suspect]
     Active Substance: RIVAROXABAN
     Indication: PULMONARY EMBOLISM
     Route: 048
  8. SIMVASTATIN. [Concomitant]
     Active Substance: SIMVASTATIN
     Route: 065
  9. DOCOSAHEXANOIC ACID W/EICOSAPENTAENOIC ACID [Concomitant]
     Active Substance: DOCONEXENT\ICOSAPENT
     Route: 065
  10. FISH OIL [Concomitant]
     Active Substance: FISH OIL
     Route: 065
  11. BISOPROLOL [Concomitant]
     Active Substance: BISOPROLOL
     Route: 065
  12. SPIRONOLACTONE. [Concomitant]
     Active Substance: SPIRONOLACTONE
     Route: 065
  13. ALLOPURINOL. [Concomitant]
     Active Substance: ALLOPURINOL
     Route: 065
  14. RANITIDIN [Concomitant]
     Active Substance: RANITIDINE HYDROCHLORIDE
     Route: 065
  15. NOVORAPID [Concomitant]
     Active Substance: INSULIN ASPART
     Route: 065
  16. VOLTAREN [Concomitant]
     Active Substance: DICLOFENAC SODIUM
     Route: 065
  17. CALCIUM W/COLECALCIFEROL [Concomitant]
     Active Substance: CALCIUM\CHOLECALCIFEROL
     Route: 065
  18. HAWTHORN [Concomitant]
     Active Substance: CRATAEGUS LAEVIGATA FRUIT
     Route: 065
  19. FUROSEMIDE. [Concomitant]
     Active Substance: FUROSEMIDE
     Route: 065
  20. PROTAPHANE [Concomitant]
     Active Substance: INSULIN HUMAN
     Route: 065
  21. CHONDROITIN W/GLUCOSAMINE [Concomitant]
     Route: 065
  22. PUMPKIN OIL [Concomitant]
     Route: 065
  23. XARELTO [Suspect]
     Active Substance: RIVAROXABAN
     Indication: DEEP VEIN THROMBOSIS
     Route: 048
  24. MAGNESIUM [Concomitant]
     Active Substance: MAGNESIUM
     Route: 065
  25. MISTLETOE EXTRACT [Concomitant]
     Active Substance: VISCUM ALBUM FRUITING TOP
     Route: 065
  26. ZINC. [Concomitant]
     Active Substance: ZINC
     Route: 065
  27. CANDESARTAN CILEXETIL W/HYDROCHLOROTHIAZIDE [Concomitant]
     Active Substance: CANDESARTAN CILEXETIL\HYDROCHLOROTHIAZIDE

REACTIONS (18)
  - Fatigue [Unknown]
  - Tinnitus [Unknown]
  - Visual acuity reduced [Unknown]
  - Disturbance in attention [Unknown]
  - Headache [Unknown]
  - Depression [Unknown]
  - Pain in extremity [Unknown]
  - Rash erythematous [Unknown]
  - Oedema peripheral [Unknown]
  - Angina pectoris [Unknown]
  - Haemorrhagic diathesis [Unknown]
  - Muscle spasms [Unknown]
  - Fluid retention [Unknown]
  - Weight increased [Unknown]
  - Hypoaesthesia [Unknown]
  - Dysgeusia [Unknown]
  - Eructation [Unknown]
  - Dyspnoea [Unknown]
